FAERS Safety Report 9410392 (Version 2)
Quarter: 2013Q3

REPORT INFORMATION
  Report Type: Report from Study
  Country: US (occurrence: US)
  Receive Date: 20130719
  Receipt Date: 20130912
  Transmission Date: 20140515
  Serious: Yes (Hospitalization)
  Sender: FDA-Public Use
  Company Number: US-GLAXOSMITHKLINE-A1033990A

PATIENT
  Age: 45 Year
  Sex: Male
  Weight: 104 kg

DRUGS (10)
  1. ELTROMBOPAG [Suspect]
     Indication: HEPATITIS C
     Dosage: 25MG PER DAY
     Route: 048
     Dates: start: 20130108
  2. BLINDED TRIAL MEDICATION [Suspect]
     Indication: HEPATITIS C
     Dosage: 1CAP PER DAY
     Route: 048
     Dates: start: 20121017
  3. PEGINTERFERON ALFA-2A [Suspect]
     Indication: HEPATITIS C
     Route: 058
     Dates: start: 20121017
  4. RIBAVIRIN [Suspect]
     Indication: HEPATITIS C
     Route: 048
     Dates: start: 20121017
  5. NADOLOL [Concomitant]
     Indication: PORTAL HYPERTENSION
     Dosage: 20MG PER DAY
     Route: 048
  6. TYLENOL [Concomitant]
     Indication: BACK PAIN
     Dosage: 1000MG AS REQUIRED
     Route: 048
  7. LACTOBACILLUS ACIDOPHILUS [Concomitant]
     Indication: DIARRHOEA
     Dosage: 2CAP PER DAY
     Route: 048
  8. OXYCODONE [Concomitant]
     Dosage: 5MG TWICE PER DAY
     Route: 048
     Dates: start: 20121019
  9. LOPERAMIDE [Concomitant]
     Indication: DIARRHOEA
     Dosage: 2MG TWICE PER DAY
     Route: 048
     Dates: start: 20121105
  10. NEUPOGEN [Concomitant]

REACTIONS (5)
  - Mesenteric vein thrombosis [Recovered/Resolved]
  - Portal vein thrombosis [Recovered/Resolved]
  - Splenic vein thrombosis [Recovered/Resolved]
  - Splenomegaly [Recovered/Resolved]
  - Pancytopenia [Recovered/Resolved]
